FAERS Safety Report 6584781-7 (Version None)
Quarter: 2010Q1

REPORT INFORMATION
  Report Type: 
  Country: None (occurrence: None)
  Receive Date: 20100217
  Receipt Date: 20100203
  Transmission Date: 20100710
  Serious: Yes (Other)
  Sender: FDA-Public Use
  Company Number: PHEH2008US10483

PATIENT

DRUGS (42)
  1. ZELNORM [Suspect]
     Dosage: 6 MG / BID
     Dates: start: 20060101, end: 20070101
  2. VERAPAMIL [Concomitant]
     Dosage: 120 MG / DAILY
  3. VYTORIN [Concomitant]
     Dosage: 10/40 / DAILY
  4. PLAVIX [Concomitant]
     Dosage: 75 MG / DAILY
  5. PROBENECID [Concomitant]
     Dosage: 500 MG / TWICE DAILY
  6. LEXAPRO [Concomitant]
     Dosage: 10 MG / DAILY
  7. SINGULAIR [Concomitant]
     Dosage: 10 MG / DAILY
  8. COLCHICINE [Concomitant]
     Dosage: 0.6MG / TWICE DAILY
  9. ALDACTONE [Concomitant]
     Dosage: 100 MG / DAILY
  10. ADVAIR DISKUS 100/50 [Concomitant]
     Dosage: 500/50 / DAILY
  11. RHINOCORT (BECLOMETASONE DIPROPIONATE) [Concomitant]
     Dosage: UNK
  12. XANAX [Concomitant]
     Dosage: 0.5 MG / AS NEEDED
  13. ASPIRIN [Concomitant]
     Dosage: 81 MG / DAILY
  14. ALBUTEROL [Concomitant]
     Dosage: UNK
  15. DEMADEX [Concomitant]
     Dosage: 40 MG / TWICE DAILY
  16. BYETTA [Concomitant]
     Dosage: UNK / TWICE DAILY
  17. HUMULIN R [Concomitant]
     Dosage: UNK / THREE X DAILY
  18. TRICOR [Concomitant]
     Dosage: 145 MG / DAILY
  19. NITROGLYCERIN [Concomitant]
     Dosage: UNK
     Route: 060
  20. LASIX [Suspect]
     Dosage: 60 MG / TWICE DAILY
  21. NIASPAN [Concomitant]
     Dosage: UNK
  22. LOVAZA [Concomitant]
     Dosage: UNK / DAILY
  23. CARDIZEM CD [Concomitant]
     Dosage: UNK
  24. REGLAN [Concomitant]
     Dosage: 10 MG / TWICE DAILY
  25. PREVACID [Concomitant]
     Dosage: UNK
  26. COZAAR [Concomitant]
     Dosage: 25 MG / DAILY
  27. LANTUS [Concomitant]
     Dosage: 100 UNITS / DAILY
  28. HUMALOG [Concomitant]
     Dosage: 100 UNITS / DAILY
  29. TOPROL-XL [Concomitant]
     Dosage: 12.5 MG / DAILY
  30. COLACE [Concomitant]
     Dosage: UNK / TWICE DAILY
  31. CROMOLYN SODIUM [Concomitant]
     Dosage: UNK
  32. DARVOCET-N 100 [Concomitant]
     Dosage: UNK / AS NEEDED
  33. DIFLUCAN [Concomitant]
     Dosage: UNK
  34. TRAMADOL [Concomitant]
     Dosage: UNK / AS NEEDED
  35. VERELAN - SLOW RELEASE [Concomitant]
     Dosage: 120 MG / DAILY
  36. ZETIA [Concomitant]
     Dosage: UNK
  37. NEXIUM [Concomitant]
     Dosage: 40 MG / DAILY
  38. TORADOL [Concomitant]
     Dosage: 60 MG
  39. FLEET ENEMA                             /CAN/ [Concomitant]
     Indication: FLATULENCE
     Dosage: UNK
  40. ZOFRAN [Concomitant]
     Dosage: UNK
  41. PEPCID AC [Concomitant]
     Dosage: UNK
  42. METOLAZONE [Concomitant]
     Dosage: 2.5 MGM / WEEKLY

REACTIONS (49)
  - ABDOMINAL DISTENSION [None]
  - ABDOMINAL PAIN [None]
  - ACUTE MYOCARDIAL INFARCTION [None]
  - ADDISON'S DISEASE [None]
  - ANGINA PECTORIS [None]
  - ANXIETY [None]
  - ASTHMA [None]
  - BACK PAIN [None]
  - BLOOD TRIGLYCERIDES INCREASED [None]
  - BOWEL MOVEMENT IRREGULARITY [None]
  - BRONCHITIS [None]
  - CATHETERISATION CARDIAC [None]
  - CHEST DISCOMFORT [None]
  - CONSTIPATION [None]
  - CORONARY ARTERY DISEASE [None]
  - DEPRESSION [None]
  - DYSLIPIDAEMIA [None]
  - EARLY SATIETY [None]
  - EMOTIONAL DISTRESS [None]
  - FLATULENCE [None]
  - GASTRITIS [None]
  - GASTROOESOPHAGEAL REFLUX DISEASE [None]
  - HAEMOGLOBIN ABNORMAL [None]
  - HEADACHE [None]
  - HEPATIC STEATOSIS [None]
  - HEPATITIS C [None]
  - HIATUS HERNIA [None]
  - HYPERPARATHYROIDISM [None]
  - HYPERSENSITIVITY [None]
  - HYPOAESTHESIA [None]
  - HYPOXIA [None]
  - INJURY [None]
  - INSOMNIA [None]
  - LUMBAR SPINAL STENOSIS [None]
  - METABOLIC SYNDROME [None]
  - MUSCLE STRAIN [None]
  - MUSCULOSKELETAL CHEST PAIN [None]
  - NAUSEA [None]
  - NEPHROCALCINOSIS [None]
  - NEPHROLITHIASIS [None]
  - NON-CARDIAC CHEST PAIN [None]
  - OBESITY [None]
  - OESOPHAGEAL HYPOMOTILITY [None]
  - PNEUMONIA [None]
  - POLYCYTHAEMIA VERA [None]
  - RENAL FAILURE [None]
  - STENT PLACEMENT [None]
  - SYRINGOMYELIA [None]
  - VOMITING [None]
